FAERS Safety Report 6392483-5 (Version None)
Quarter: 2009Q4

REPORT INFORMATION
  Report Type: 
  Country: None (occurrence: None)
  Receive Date: 20091007
  Receipt Date: 20090929
  Transmission Date: 20100525
  Serious: Yes (Hospitalization)
  Sender: FDA-Public Use
  Company Number: JP-SANOFI-SYNTHELABO-A01200909472

PATIENT
  Sex: Female
  Weight: 47 kg

DRUGS (12)
  1. WARFARIN SODIUM [Concomitant]
     Indication: ATRIAL FIBRILLATION
     Route: 048
  2. ARTIST [Concomitant]
     Indication: HYPERTENSION
     Route: 048
  3. HALFDIGOXIN [Concomitant]
     Indication: CARDIAC FAILURE
     Route: 048
  4. LASIX [Concomitant]
     Indication: CARDIAC FAILURE
     Route: 048
  5. GASTER [Concomitant]
     Indication: REFLUX OESOPHAGITIS
     Route: 048
  6. DIOVAN [Concomitant]
     Indication: HYPERTENSION
     Route: 048
  7. ASPIRIN [Concomitant]
     Indication: ANGINA PECTORIS
     Route: 048
  8. MEVALOTIN [Interacting]
     Indication: HYPERLIPIDAEMIA
     Route: 048
     Dates: end: 20090908
  9. MEVALOTIN [Interacting]
     Route: 048
     Dates: end: 20090908
  10. PLAVIX [Suspect]
     Indication: PERCUTANEOUS CORONARY INTERVENTION
     Dosage: 300 MG ONCE AS LOADING DOSE FOLLOWED BY 75 MG DAILY
     Route: 048
     Dates: start: 20090824, end: 20090908
  11. PLAVIX [Interacting]
     Indication: STENT PLACEMENT
     Dosage: 300 MG ONCE AS LOADING DOSE FOLLOWED BY 75 MG DAILY
     Route: 048
     Dates: start: 20090824, end: 20090908
  12. PLAVIX [Interacting]
     Indication: MYOCARDIAL ISCHAEMIA
     Dosage: 300 MG ONCE AS LOADING DOSE FOLLOWED BY 75 MG DAILY
     Route: 048
     Dates: start: 20090824, end: 20090908

REACTIONS (2)
  - DRUG INTERACTION [None]
  - RHABDOMYOLYSIS [None]
